FAERS Safety Report 5006419-2 (Version None)
Quarter: 2006Q2

REPORT INFORMATION
  Report Type: 
  Country: None (occurrence: None)
  Receive Date: 20060516
  Receipt Date: 20060501
  Transmission Date: 20061013
  Serious: Yes (Hospitalization)
  Sender: FDA-Public Use
  Company Number: 2006US000908

PATIENT
  Age: 50 Year
  Sex: Female

DRUGS (1)
  1. AMEVIVE [Suspect]
     Indication: PSORIASIS

REACTIONS (3)
  - HEPATITIS [None]
  - HERPES SIMPLEX [None]
  - HYPONATRAEMIA [None]
